FAERS Safety Report 6635985-6 (Version None)
Quarter: 2010Q1

REPORT INFORMATION
  Report Type: 
  Country: None (occurrence: None)
  Receive Date: 20100310
  Receipt Date: 20100305
  Transmission Date: 20100710
  Serious: Yes (Death)
  Sender: FDA-Public Use
  Company Number: 2009US004149

PATIENT
  Age: 66 Year
  Sex: Male

DRUGS (16)
  1. AMBISOME [Suspect]
     Indication: FUNGAL INFECTION
     Dosage: 150 MG, UID/QD, IV NOS
     Route: 042
     Dates: start: 20091017, end: 20091025
  2. FIRSTCIN (CEFOZOPRAN HYDROCHLORIDE) [Concomitant]
  3. MEROPEN (MEROPENEM TRIHYDRATE) [Concomitant]
  4. PASIL (PAZUFLOXACIN) [Concomitant]
  5. ZOSYN [Concomitant]
  6. ELEMENIC (COPPER SULFATE, FERRIC CHLORIDE, MANGANESE CHLORIDE) [Concomitant]
  7. FAMOTIDINE [Concomitant]
  8. HEPARIN SODIUM [Concomitant]
  9. HUMULIN R [Concomitant]
  10. DOPAMINE HYDROCHLORIDE [Concomitant]
  11. LACTEC (SODIUM LACTATE) [Concomitant]
  12. MIDAZOLAM HCL [Concomitant]
  13. DIPRIVAN [Concomitant]
  14. BUPRENORPHINE HCL [Concomitant]
  15. SERENACE (HALOPERIDOL) [Concomitant]
  16. FULCALIQ (AMINO ACIDS NOS, CARBOHYDRATES NOS, ELECTROLYTES NOS, VITAMI [Concomitant]

REACTIONS (2)
  - HAEMODIALYSIS [None]
  - RENAL FAILURE ACUTE [None]
